FAERS Safety Report 15344046 (Version 1)
Quarter: 2018Q3

REPORT INFORMATION
  Report Type: Spontaneous
  Country: GB (occurrence: GB)
  Receive Date: 20180903
  Receipt Date: 20180903
  Transmission Date: 20181010
  Serious: Yes (Hospitalization, Other)
  Sender: FDA-Public Use
  Company Number: GB-PFIZER INC-2018350134

PATIENT
  Age: 51 Year
  Sex: Male

DRUGS (2)
  1. PREMARIN [Suspect]
     Active Substance: ESTROGENS, CONJUGATED
     Indication: PHOBIA
     Dosage: UNK
  2. CYPROTERONE ACETATE [Concomitant]
     Active Substance: CYPROTERONE ACETATE
     Indication: PHOBIA
     Dosage: UNK

REACTIONS (2)
  - Product use issue [Unknown]
  - Breast cancer male [Recovering/Resolving]
